FAERS Safety Report 5869178-7 (Version None)
Quarter: 2008Q3

REPORT INFORMATION
  Report Type: 
  Country: None (occurrence: None)
  Receive Date: 20080827
  Receipt Date: 20080722
  Transmission Date: 20090109
  Serious: Yes (Other)
  Sender: FDA-Public Use
  Company Number: PHEH2008US05890

PATIENT
  Age: 44 Year
  Sex: Female
  Weight: 78.5 kg

DRUGS (35)
  1. RECLAST [Suspect]
     Indication: OSTEOPOROSIS
     Dosage: 5 MG/100ML, ONCE IV INFUSION
     Dates: start: 20080605
  2. VITAMIN D [Concomitant]
  3. TRICOR [Concomitant]
  4. THEO (THEOPHYLLINE) [Concomitant]
  5. SINGULAIR [Concomitant]
  6. PRILOSEC [Concomitant]
  7. PREMARIN [Concomitant]
  8. POTASSIUM CHLORIDE [Concomitant]
  9. PLAVIX [Concomitant]
  10. PHENERGAN ^AVENTIS PHARMA^ (PROMETHAZINE HYDROCHLORIDE) [Concomitant]
  11. OS-CAL D (CALCIUM CARBONATE, COLECALCIFEROL) [Concomitant]
  12. NOVOLOG (INSULIN ASPART), 100 U/ML [Concomitant]
  13. NOVOLIN (INSULIN HUMAN INJECTION, ISOPHANE), 70/30 [Concomitant]
  14. NITROSTAT [Concomitant]
  15. NASONEX [Concomitant]
  16. MILK OF MAGNESIA TAB [Concomitant]
  17. METOPROLOL TARTRATE [Concomitant]
  18. LOVAZA [Concomitant]
  19. LISINOPRIL [Concomitant]
  20. LASIX [Concomitant]
  21. LANTUS (INSULIN GLARGINE), 100 U/ML [Concomitant]
  22. GLUCOTROL XL [Concomitant]
  23. GLUCOPHAGE [Concomitant]
  24. FLECTOR (DICLOFENAC SODIUM), 1.3 % [Concomitant]
  25. CRESTOR [Concomitant]
  26. CARBAMAZEPINE [Concomitant]
  27. BETOPTIC-S (BETAXOLOL HYDROCHLORIDE) , 0.25 % [Concomitant]
  28. ASPIRIN [Concomitant]
  29. AMOXICILLIN (AMOXICILLIN) CAPSULE [Concomitant]
  30. ALLEGRA [Concomitant]
  31. ALBUTEROL SULFATE [Concomitant]
  32. XANAX [Concomitant]
  33. SOMA [Concomitant]
  34. LORCET-HD [Concomitant]
  35. LIDODERM (LIDOCAINE), 5 % [Concomitant]

REACTIONS (7)
  - ABASIA [None]
  - ARTHRALGIA [None]
  - BLOOD CREATINE PHOSPHOKINASE INCREASED [None]
  - BLOOD GLUCOSE INCREASED [None]
  - BONE PAIN [None]
  - MYALGIA [None]
  - PAIN [None]
